FAERS Safety Report 24845629 (Version 1)
Quarter: 2025Q1

REPORT INFORMATION
  Report Type: Spontaneous
  Country: US (occurrence: US)
  Receive Date: 20250115
  Receipt Date: 20250115
  Transmission Date: 20250408
  Serious: No
  Sender: BRISTOL-MYERS SQUIBB COMPANY
  Company Number: US-BRISTOL-MYERS SQUIBB COMPANY-2025-004914

PATIENT
  Age: 38 Year
  Sex: Female

DRUGS (2)
  1. ZEPOSIA [Suspect]
     Active Substance: OZANIMOD HYDROCHLORIDE
     Indication: Multiple sclerosis
     Route: 048
     Dates: start: 202412
  2. MIDODRINE [Suspect]
     Active Substance: MIDODRINE
     Indication: Blood pressure measurement

REACTIONS (4)
  - Diarrhoea [Unknown]
  - Illness [Unknown]
  - Heart rate decreased [Unknown]
  - Blood pressure diastolic abnormal [Unknown]

NARRATIVE: CASE EVENT DATE: 20250101
